FAERS Safety Report 23940429 (Version 1)
Quarter: 2024Q2

REPORT INFORMATION
  Report Type: Other
  Country: TH (occurrence: None)
  Receive Date: 20240605
  Receipt Date: 20240605
  Transmission Date: 20240716
  Serious: Yes (Hospitalization, Other)
  Sender: FDA-Public Use
  Company Number: TH-ROCHE-3570240

PATIENT
  Sex: Female

DRUGS (2)
  1. KADCYLA [Suspect]
     Active Substance: ADO-TRASTUZUMAB EMTANSINE
     Indication: Breast cancer metastatic
     Route: 065
  2. KADCYLA [Suspect]
     Active Substance: ADO-TRASTUZUMAB EMTANSINE
     Route: 065

REACTIONS (6)
  - Seizure [Unknown]
  - Balance disorder [Unknown]
  - Malaise [Unknown]
  - Metastatic neoplasm [Unknown]
  - Metastases to lung [Unknown]
  - Metastases to liver [Unknown]
